FAERS Safety Report 15517766 (Version 2)
Quarter: 2019Q3

REPORT INFORMATION
  Report Type: Spontaneous
  Country: US (occurrence: US)
  Receive Date: 20181017
  Receipt Date: 20190905
  Transmission Date: 20191004
  Serious: Yes (Other)
  Sender: FDA-Public Use
  Company Number: US-ELI_LILLY_AND_COMPANY-US201810005568

PATIENT
  Sex: Male

DRUGS (3)
  1. FLOMAX [MORNIFLUMATE] [Suspect]
     Active Substance: MORNIFLUMATE
     Indication: PRODUCT USED FOR UNKNOWN INDICATION
     Dosage: 0.4 MG, BID
     Route: 065
     Dates: start: 20060620
  2. VIAGRA [Suspect]
     Active Substance: SILDENAFIL CITRATE
     Indication: BENIGN PROSTATIC HYPERPLASIA
     Dosage: 100 MG, 2/M
     Route: 065
     Dates: start: 20040515, end: 20110620
  3. CIALIS [Suspect]
     Active Substance: TADALAFIL
     Indication: BENIGN PROSTATIC HYPERPLASIA
     Dosage: 20 MG, 2/M
     Route: 065
     Dates: start: 20040515, end: 20131009

REACTIONS (2)
  - Lentigo maligna [Unknown]
  - Malignant melanoma stage I [Unknown]

NARRATIVE: CASE EVENT DATE: 20130903
